FAERS Safety Report 7968131-7 (Version None)
Quarter: 2011Q4

REPORT INFORMATION
  Report Type: 
  Country: None (occurrence: None)
  Receive Date: 20111121
  Receipt Date: 20110923
  Transmission Date: 20120403
  Serious: No
  Sender: FDA-Public Use
  Company Number: 1000024159

PATIENT
  Age: 64 Year
  Sex: Female

DRUGS (7)
  1. LEVOTHYROXINE (LEVOTHYROXINE SODIUM) (LEVOTHYROXINE SODIUM) [Concomitant]
  2. CRESTOR [Concomitant]
  3. TRIMETHOPRIM [Concomitant]
  4. COLON HEALTH PROBIOTIC (COLON HEALTH PROBIOTIC) (COLON HEALTH PROBIOTI [Concomitant]
  5. VIIBRYD [Suspect]
     Indication: DEPRESSION
     Dosage: 10 MG (10 MG, 1 IN 1 D), ORAL
     Route: 048
     Dates: start: 20110921
  6. AMBIEN [Concomitant]
  7. CIPRO (CIPROFLOXACIN) (CIPROFLOXACIN) [Concomitant]

REACTIONS (2)
  - FLATULENCE [None]
  - DIARRHOEA [None]
